FAERS Safety Report 24239491 (Version 3)
Quarter: 2025Q1

REPORT INFORMATION
  Report Type: Spontaneous
  Country: US (occurrence: US)
  Receive Date: 20240822
  Receipt Date: 20250227
  Transmission Date: 20250409
  Serious: No
  Sender: AVADEL CNS PHARMACEUTICALS, LLC
  Company Number: US-AVADEL CNS PHARMACEUTICALS, LLC-2024AVA01162

PATIENT
  Sex: Female

DRUGS (13)
  1. LUMRYZ [Suspect]
     Active Substance: SODIUM OXYBATE
     Indication: Narcolepsy
     Dosage: 6 G, ONCE NIGHTLY
     Dates: start: 202406, end: 202407
  2. LUMRYZ [Suspect]
     Active Substance: SODIUM OXYBATE
     Indication: Cataplexy
  3. LUMRYZ [Suspect]
     Active Substance: SODIUM OXYBATE
     Indication: Narcolepsy
     Dosage: 4.5 G, ONCE NIGHTLY
     Dates: start: 20240704, end: 202407
  4. LUMRYZ [Suspect]
     Active Substance: SODIUM OXYBATE
     Indication: Cataplexy
  5. WAKIX [Suspect]
     Active Substance: PITOLISANT HYDROCHLORIDE
     Dates: start: 2023, end: 2023
  6. WAKIX [Suspect]
     Active Substance: PITOLISANT HYDROCHLORIDE
     Dosage: 4.45 MG, ONCE DAILY
     Dates: start: 202410, end: 2024
  7. WAKIX [Suspect]
     Active Substance: PITOLISANT HYDROCHLORIDE
     Dates: start: 2024
  8. PEPCID [Concomitant]
     Active Substance: FAMOTIDINE
  9. TYLENOL [Concomitant]
     Active Substance: ACETAMINOPHEN
  10. IBUPROFEN [Concomitant]
     Active Substance: IBUPROFEN
  11. VITAMINS [Concomitant]
     Active Substance: VITAMINS
  12. SERTRALINE HYDROCHLORIDE [Concomitant]
     Active Substance: SERTRALINE HYDROCHLORIDE
  13. ZYRTEC-D [Concomitant]
     Active Substance: CETIRIZINE HYDROCHLORIDE\PSEUDOEPHEDRINE HYDROCHLORIDE
     Dosage: UNK, 5 MG-120 MG SUSTAINED-RELEASE TABLET 12 HOURS

REACTIONS (8)
  - Malaise [Not Recovered/Not Resolved]
  - Fatigue [Not Recovered/Not Resolved]
  - Nasopharyngitis [Unknown]
  - Rhinorrhoea [Unknown]
  - Nasal congestion [Unknown]
  - Cough [Unknown]
  - Throat irritation [Unknown]
  - Dizziness [Recovering/Resolving]

NARRATIVE: CASE EVENT DATE: 20240101
